FAERS Safety Report 6185662-3 (Version None)
Quarter: 2009Q2

REPORT INFORMATION
  Report Type: 
  Country: None (occurrence: None)
  Receive Date: 20090511
  Receipt Date: 20090428
  Transmission Date: 20091009
  Serious: Yes (Hospitalization)
  Sender: FDA-Public Use
  Company Number: PHHO2009KR00799

PATIENT
  Sex: Female
  Weight: 49 kg

DRUGS (7)
  1. ERL 080A ERL+TAB [Suspect]
     Indication: RENAL TRANSPLANT
     Dosage: 780 MG, BID
     Route: 048
     Dates: start: 20081205
  2. ERL 080A ERL+TAB [Suspect]
     Dosage: 720 MG, BID
     Dates: end: 20090331
  3. ERL 080A ERL+TAB [Suspect]
     Dosage: UNK
     Dates: start: 20090402, end: 20090409
  4. PROGRAF [Suspect]
     Indication: RENAL TRANSPLANT
     Dosage: 1 MG, BID
     Route: 048
     Dates: start: 20090102
  5. PROGRAF [Suspect]
     Dosage: 1 MG, BID
     Route: 048
     Dates: start: 20090114
  6. PREDNISOLONE [Concomitant]
     Indication: RENAL TRANSPLANT
     Dosage: UNK
     Route: 048
     Dates: start: 20090110
  7. PREDNISOLONE [Concomitant]
     Dosage: 5 MG, BID
     Route: 048
     Dates: start: 20090116

REACTIONS (7)
  - BLOOD CREATININE INCREASED [None]
  - CONCOMITANT DISEASE PROGRESSION [None]
  - CYTOMEGALOVIRUS INFECTION [None]
  - DEHYDRATION [None]
  - NEPHROPATHY TOXIC [None]
  - POLYOMAVIRUS-ASSOCIATED NEPHROPATHY [None]
  - TRANSPLANT REJECTION [None]
